FAERS Safety Report 4738178-2 (Version None)
Quarter: 2005Q3

REPORT INFORMATION
  Report Type: 
  Country: None (occurrence: None)
  Receive Date: 20050809
  Receipt Date: 20050726
  Transmission Date: 20060218
  Serious: Yes (Death)
  Sender: FDA-Public Use
  Company Number: LB-MERCK-0508USA01246

PATIENT
  Age: 16 Year
  Sex: Male

DRUGS (4)
  1. PRIMAXIN [Suspect]
     Route: 042
     Dates: start: 20050701
  2. TARGOCID [Concomitant]
     Route: 065
  3. DIFLUCAN [Concomitant]
     Route: 065
  4. AMIKIN [Concomitant]
     Route: 065

REACTIONS (1)
  - ACINETOBACTER INFECTION [None]
